FAERS Safety Report 23699052 (Version 2)
Quarter: 2024Q2

REPORT INFORMATION
  Report Type: Spontaneous
  Country: US (occurrence: US)
  Receive Date: 20240402
  Receipt Date: 20240413
  Transmission Date: 20240716
  Serious: Yes (Other)
  Sender: FDA-Public Use
  Company Number: US-TEVA-VS-3174222

PATIENT
  Age: 52 Year
  Sex: Female

DRUGS (3)
  1. PIMOZIDE [Suspect]
     Active Substance: PIMOZIDE
     Indication: Delusion
     Dosage: WITH A PLAN TO UP-TITRATE BY 0.5 MG EVERY 2-3 WEEKS TO REACH 3 MG DAILY,
     Route: 048
  2. PIMOZIDE [Suspect]
     Active Substance: PIMOZIDE
     Indication: Delusion
     Route: 048
  3. PIMOZIDE [Suspect]
     Active Substance: PIMOZIDE
     Indication: Delusion
     Route: 048

REACTIONS (4)
  - Tardive dyskinesia [Unknown]
  - Rebound effect [Unknown]
  - Drug ineffective [Unknown]
  - Akathisia [Unknown]
